FAERS Safety Report 8180851-0 (Version None)
Quarter: 2012Q1

REPORT INFORMATION
  Report Type: 
  Country: None (occurrence: None)
  Receive Date: 20120302
  Receipt Date: 20120228
  Transmission Date: 20120608
  Serious: Yes (Death)
  Sender: FDA-Public Use
  Company Number: NL-JNJFOC-20120300775

PATIENT

DRUGS (4)
  1. HEPARIN [Suspect]
     Indication: MYOCARDIAL INFARCTION
     Route: 065
  2. ABCIXIMAB [Suspect]
     Indication: PERCUTANEOUS CORONARY INTERVENTION
     Route: 042
  3. ASPIRIN [Suspect]
     Indication: MYOCARDIAL INFARCTION
     Route: 065
  4. CLOPIDOGREL [Suspect]
     Indication: MYOCARDIAL INFARCTION
     Route: 065

REACTIONS (2)
  - CARDIAC DEATH [None]
  - MYOCARDIAL INFARCTION [None]
